FAERS Safety Report 11448241 (Version 1)
Quarter: 2015Q3

REPORT INFORMATION
  Report Type: Spontaneous
  Country: US (occurrence: US)
  Receive Date: 20150831
  Receipt Date: 20150831
  Transmission Date: 20151125
  Serious: No
  Sender: FDA-Public Use
  Company Number: US-ELI_LILLY_AND_COMPANY-US200906004759

PATIENT
  Age: 60 Year
  Sex: Female

DRUGS (1)
  1. CYMBALTA [Suspect]
     Active Substance: DULOXETINE HYDROCHLORIDE
     Indication: POST HERPETIC NEURALGIA
     Dosage: 30 MG, UNK
     Dates: start: 200903, end: 200906

REACTIONS (5)
  - Off label use [Recovered/Resolved]
  - Insomnia [Unknown]
  - Anxiety [Unknown]
  - Fear [Unknown]
  - Mania [Unknown]

NARRATIVE: CASE EVENT DATE: 200903
